FAERS Safety Report 25250644 (Version 1)
Quarter: 2025Q2

REPORT INFORMATION
  Report Type: Spontaneous
  Country: IT (occurrence: IT)
  Receive Date: 20250429
  Receipt Date: 20250429
  Transmission Date: 20250717
  Serious: Yes (Death, Other)
  Sender: RISING PHARMACEUTICALS
  Company Number: IT-RISINGPHARMA-IT-2025RISLIT00197

PATIENT
  Age: 44 Year
  Sex: Female

DRUGS (3)
  1. FLUOXETINE HYDROCHLORIDE [Suspect]
     Active Substance: FLUOXETINE HYDROCHLORIDE
     Indication: Product used for unknown indication
     Route: 045
  2. COCAINE [Suspect]
     Active Substance: COCAINE
     Indication: Product used for unknown indication
     Route: 045
  3. ALCOHOL [Concomitant]
     Active Substance: ALCOHOL
     Indication: Product used for unknown indication
     Route: 065

REACTIONS (2)
  - Cardiac failure acute [Fatal]
  - Toxicity to various agents [Fatal]
